FAERS Safety Report 7651864-X (Version None)
Quarter: 2011Q3

REPORT INFORMATION
  Report Type: 
  Country: None (occurrence: None)
  Receive Date: 20110803
  Receipt Date: 20110727
  Transmission Date: 20111222
  Serious: Yes (Hospitalization)
  Sender: FDA-Public Use
  Company Number: US-BIOGENIDEC-2011BI025391

PATIENT
  Age: 43 Year
  Sex: Female

DRUGS (1)
  1. AVONEX [Suspect]
     Indication: MULTIPLE SCLEROSIS
     Route: 030
     Dates: start: 19970401

REACTIONS (6)
  - MULTIPLE SCLEROSIS RELAPSE [None]
  - PAIN [None]
  - FALL [None]
  - ABDOMINAL PAIN [None]
  - INTERVERTEBRAL DISC INJURY [None]
  - SCAR [None]
